FAERS Safety Report 4439030-2 (Version None)
Quarter: 2004Q3

REPORT INFORMATION
  Report Type: 
  Country: None (occurrence: None)
  Receive Date: 20040830
  Receipt Date: 20040817
  Transmission Date: 20050211
  Serious: Yes (Disabling)
  Sender: FDA-Public Use
  Company Number: 208484

PATIENT
  Age: 76 Year
  Sex: Female

DRUGS (1)
  1. ACTILYSE (ALTEPLASE) PWDR + SOLVENT, INFUSION SOLN [Suspect]
     Indication: CEREBROVASCULAR ACCIDENT
     Dosage: 22 MG, SINGLE, INTRAVENOUS
     Route: 042
     Dates: start: 20040220, end: 20040220

REACTIONS (1)
  - PULMONARY OEDEMA [None]
